FAERS Safety Report 10146887 (Version 1)
Quarter: 2014Q2

REPORT INFORMATION
  Report Type: Spontaneous
  Country: US (occurrence: US)
  Receive Date: 20140501
  Receipt Date: 20140501
  Transmission Date: 20141212
  Serious: Yes (Hospitalization, Congenital Anomaly, Other)
  Sender: FDA-Public Use
  Company Number: US-JNJFOC-20140417897

PATIENT
  Sex: Male

DRUGS (1)
  1. TOPAMAX [Suspect]
     Indication: PRODUCT USED FOR UNKNOWN INDICATION
     Dosage: MOTHER^S DOSING
     Route: 064

REACTIONS (6)
  - Foetal exposure during pregnancy [Unknown]
  - Cleft lip and palate [Unknown]
  - Otitis media chronic [Unknown]
  - Eustachian tube dysfunction [Unknown]
  - Atrial septal defect [Unknown]
  - Congenital hydronephrosis [Unknown]
